FAERS Safety Report 21908943 (Version 1)
Quarter: 2023Q1

REPORT INFORMATION
  Report Type: Spontaneous
  Country: US (occurrence: None)
  Receive Date: 20230124
  Receipt Date: 20230124
  Transmission Date: 20230417
  Serious: Yes (Other)
  Sender: FDA-Public Use
  Company Number: None

PATIENT
  Age: 65 Year
  Sex: Male

DRUGS (1)
  1. TESTOSTERONE CYPIONATE [Suspect]
     Active Substance: TESTOSTERONE CYPIONATE
     Indication: Endocrine disorder
     Dosage: OTHER FREQUENCY : EVERY 14 DAYS;?
     Route: 030
     Dates: start: 20221025, end: 20230120

REACTIONS (2)
  - Skin burning sensation [None]
  - Injection related reaction [None]

NARRATIVE: CASE EVENT DATE: 20230120
